FAERS Safety Report 10605849 (Version 1)
Quarter: 2014Q4

REPORT INFORMATION
  Report Type: Spontaneous
  Country: US (occurrence: None)
  Receive Date: 20141121
  Receipt Date: 20141121
  Transmission Date: 20150529
  Serious: Yes (Hospitalization)
  Sender: FDA-Public Use
  Company Number: 2622416

PATIENT
  Age: 44 Year
  Sex: Male

DRUGS (3)
  1. PROMETHAZINE HYDROCHLORIDE. [Suspect]
     Active Substance: PROMETHAZINE HYDROCHLORIDE
     Indication: PULMONARY CONGESTION
  2. DEXTROMETHORPHAN HYDROBROMIDE. [Concomitant]
     Active Substance: DEXTROMETHORPHAN HYDROBROMIDE
  3. AZITHROMYCIN [Suspect]
     Active Substance: AZITHROMYCIN ANHYDROUS
     Indication: PYREXIA

REACTIONS (7)
  - Drug reaction with eosinophilia and systemic symptoms [None]
  - Sepsis [None]
  - Skin infection [None]
  - Renal failure [None]
  - Superinfection [None]
  - General physical health deterioration [None]
  - Disseminated intravascular coagulation [None]
